FAERS Safety Report 24324592 (Version 1)
Quarter: 2024Q3

REPORT INFORMATION
  Report Type: Spontaneous
  Country: JP (occurrence: JP)
  Receive Date: 20240916
  Receipt Date: 20240916
  Transmission Date: 20241016
  Serious: Yes (Life-Threatening, Other)
  Sender: PFIZER
  Company Number: JP-PFIZER INC-PV202400119425

PATIENT
  Age: 57 Year
  Sex: Female
  Weight: 46 kg

DRUGS (3)
  1. BEVACIZUMAB [Suspect]
     Active Substance: BEVACIZUMAB
     Indication: Squamous cell carcinoma of the cervix
     Dosage: 15 MG/KG, CYCLIC ON DAY 1 EVERY 21 DAYS
  2. PACLITAXEL [Concomitant]
     Active Substance: PACLITAXEL
     Indication: Squamous cell carcinoma of the cervix
     Dosage: 175 MG/M2, CYCLIC ON DAY 1 EVERY 21 DAYS
  3. CARBOPLATIN [Concomitant]
     Active Substance: CARBOPLATIN
     Indication: Squamous cell carcinoma of the cervix
     Dosage: AUC5, ON DAY 1 EVERY 21 DAYS

REACTIONS (1)
  - Pneumothorax spontaneous [Recovered/Resolved]
